FAERS Safety Report 24031073 (Version 1)
Quarter: 2024Q2

REPORT INFORMATION
  Report Type: Spontaneous
  Country: UY (occurrence: UY)
  Receive Date: 20240628
  Receipt Date: 20240628
  Transmission Date: 20240716
  Serious: Yes (Death, Other)
  Sender: FDA-Public Use
  Company Number: UY-JAZZ PHARMACEUTICALS-2024-UY-009900

PATIENT
  Age: 12 Year
  Sex: Male

DRUGS (1)
  1. DEFIBROTIDE SODIUM [Suspect]
     Active Substance: DEFIBROTIDE SODIUM
     Indication: Sickle cell anaemia with crisis
     Dosage: 400 MILLIGRAM, EVERY 6 HOURS / 6.00 HOURS
     Route: 042
     Dates: start: 20240621, end: 20240626

REACTIONS (1)
  - Death [Fatal]

NARRATIVE: CASE EVENT DATE: 20240626
